FAERS Safety Report 21095488 (Version 1)
Quarter: 2022Q3

REPORT INFORMATION
  Report Type: Spontaneous
  Country: SE (occurrence: SE)
  Receive Date: 20220718
  Receipt Date: 20220718
  Transmission Date: 20221026
  Serious: Yes (Other)
  Sender: FDA-Public Use
  Company Number: SE-PFM-2022-05584

PATIENT

DRUGS (1)
  1. PROPRANOLOL [Suspect]
     Active Substance: PROPRANOLOL HYDROCHLORIDE
     Indication: Infantile haemangioma
     Dosage: UNK
     Route: 065

REACTIONS (5)
  - Hypothyroidism [Unknown]
  - Angiosarcoma [Unknown]
  - Disease progression [Unknown]
  - Product administered to patient of inappropriate age [Unknown]
  - Off label use [Unknown]
